FAERS Safety Report 25501820 (Version 1)
Quarter: 2025Q3

REPORT INFORMATION
  Report Type: Spontaneous
  Country: US (occurrence: US)
  Receive Date: 20250702
  Receipt Date: 20250702
  Transmission Date: 20251021
  Serious: No
  Sender: NOVARTIS
  Company Number: US-002147023-NVSC2025US104870

PATIENT
  Age: 73 Year
  Sex: Male
  Weight: 84.37 kg

DRUGS (1)
  1. LEQVIO [Suspect]
     Active Substance: INCLISIRAN SODIUM
     Indication: Low density lipoprotein increased
     Route: 058
     Dates: start: 20240624, end: 20240630

REACTIONS (1)
  - Arthralgia [Not Recovered/Not Resolved]

NARRATIVE: CASE EVENT DATE: 20240624
